FAERS Safety Report 9216476 (Version 3)
Quarter: 2014Q1

REPORT INFORMATION
  Report Type: Spontaneous
  Country: US (occurrence: None)
  Receive Date: 20130402
  Receipt Date: 20140304
  Transmission Date: 20141002
  Serious: Yes (Other)
  Sender: FDA-Public Use
  Company Number: AUR-APL-2013-02645

PATIENT
  Age: 77 Year
  Sex: Female
  Weight: 90.72 kg

DRUGS (7)
  1. LEVOFLOXACIN [Suspect]
     Indication: BRONCHITIS
     Dosage: 500 MG (500 MG, 1 IN 1 D), INTRAVENOUS?
     Route: 042
     Dates: start: 20121214
  2. PRILOSEC [Concomitant]
  3. ATIVAN (LORAZEPAM) [Concomitant]
  4. OXYCODONE (OXYCODONE) [Concomitant]
  5. LEXAPRO (ESCITALOPRAM OXALATE) [Concomitant]
  6. ZYRTEC-D (CIRRUS) [Concomitant]
  7. ACETAMINOPHEN\HYDROCODONE BITARTRATE [Concomitant]

REACTIONS (10)
  - Abasia [None]
  - Burning sensation [None]
  - Hypoaesthesia [None]
  - Hypoaesthesia [None]
  - Impaired work ability [None]
  - Neuropathy peripheral [None]
  - Tendonitis [None]
  - Economic problem [None]
  - Dysgraphia [None]
  - Nervous system disorder [None]
